FAERS Safety Report 10389680 (Version 1)
Quarter: 2014Q3

REPORT INFORMATION
  Report Type: Report from Study
  Country: US (occurrence: None)
  Receive Date: 20140813
  Receipt Date: 20140813
  Transmission Date: 20150326
  Serious: Yes (Hospitalization)
  Sender: FDA-Public Use
  Company Number: VAL_03299_2014

PATIENT
  Age: 1 Year
  Sex: Male

DRUGS (9)
  1. ZINC [Concomitant]
     Active Substance: ZINC\ZINC CHLORIDE
  2. CALCITRIOL. [Suspect]
     Active Substance: CALCITRIOL
     Indication: RENAL FAILURE
     Route: 048
  3. CALCITRIOL. [Suspect]
     Active Substance: CALCITRIOL
     Indication: MINERAL METABOLISM DISORDER
     Route: 048
  4. FERROUS SULFATE [Concomitant]
     Active Substance: FERROUS SULFATE\FERROUS SULFATE, DRIED
  5. SODIUM BICARBONATE. [Concomitant]
     Active Substance: SODIUM BICARBONATE
  6. CALCIUM CARBONATE. [Concomitant]
     Active Substance: CALCIUM CARBONATE
  7. CALCITRIOL. [Suspect]
     Active Substance: CALCITRIOL
     Indication: BONE DISORDER
     Route: 048
  8. PERIACTIN [Concomitant]
     Active Substance: CYPROHEPTADINE HYDROCHLORIDE
  9. NEPHRONEX [Concomitant]

REACTIONS (5)
  - Vomiting [None]
  - Failure to thrive [None]
  - Blood zinc decreased [None]
  - Urinary tract infection [None]
  - Blood parathyroid hormone increased [None]

NARRATIVE: CASE EVENT DATE: 201011
